FAERS Safety Report 13833599 (Version 1)
Quarter: 2017Q3

REPORT INFORMATION
  Report Type: Spontaneous
  Country: BR (occurrence: BR)
  Receive Date: 20170804
  Receipt Date: 20170804
  Transmission Date: 20171127
  Serious: Yes (Death)
  Sender: FDA-Public Use
  Company Number: BR-AMGEN-BRASP2014083096

PATIENT
  Age: 55 Year
  Sex: Female
  Weight: 59 kg

DRUGS (6)
  1. CODEINE [Concomitant]
     Active Substance: CODEINE
     Dosage: UNK, AS NEEDED
  2. ENBREL [Suspect]
     Active Substance: ETANERCEPT
     Indication: RHEUMATOID ARTHRITIS
     Dosage: 50 MG, WEEKLY
     Route: 058
  3. CORTISONE [Concomitant]
     Active Substance: CORTISONE\HYDROCORTISONE
     Dosage: 20 MG, ONCE A DAY
  4. ARAVA [Concomitant]
     Active Substance: LEFLUNOMIDE
     Dosage: 20 MG, ONCE A DAY
  5. CODEINE [Concomitant]
     Active Substance: CODEINE
     Dosage: UNK UNK, AS NECESSARY
  6. CORTISONE [Concomitant]
     Active Substance: CORTISONE\HYDROCORTISONE
     Dosage: 20 MG, ONCE A DAY

REACTIONS (2)
  - Nodule [Unknown]
  - Death [Fatal]

NARRATIVE: CASE EVENT DATE: 201408
